FAERS Safety Report 16716797 (Version 3)
Quarter: 2020Q4

REPORT INFORMATION
  Report Type: Report from Study
  Country: BE (occurrence: BE)
  Receive Date: 20190819
  Receipt Date: 20201015
  Transmission Date: 20210113
  Serious: Yes (Death, Life-Threatening, Hospitalization, Other)
  Sender: FDA-Public Use
  Company Number: BE-BRISTOL-MYERS SQUIBB COMPANY-BMS-2019-079297

PATIENT
  Age: 81 Year
  Sex: Male

DRUGS (9)
  1. NIVOLUMAB [Suspect]
     Active Substance: NIVOLUMAB
     Indication: RENAL CANCER
     Dosage: 207 MILLIGRAM
     Route: 042
     Dates: start: 20190704, end: 20190704
  2. KAYEXALATE [Concomitant]
     Active Substance: SODIUM POLYSTYRENE SULFONATE
     Indication: PRODUCT USED FOR UNKNOWN INDICATION
     Dosage: 30 GRAM
     Route: 048
     Dates: start: 20190720, end: 20190721
  3. PERINDOPRIL [Concomitant]
     Active Substance: PERINDOPRIL
     Indication: HYPERTENSION
     Dosage: 4 MILLIGRAM
     Route: 048
     Dates: start: 20190718
  4. MOXIFLOXACINE [Concomitant]
     Active Substance: MOXIFLOXACIN
     Indication: LUNG DISORDER
     Dosage: 400 MILLIGRAM
     Route: 048
     Dates: start: 20190718, end: 20190724
  5. CLEXANE [Concomitant]
     Active Substance: ENOXAPARIN SODIUM
     Indication: PRODUCT USED FOR UNKNOWN INDICATION
     Dosage: 40 MILLIGRAM
     Route: 058
     Dates: start: 20190720, end: 20190724
  6. OMEPRAZOLE. [Concomitant]
     Active Substance: OMEPRAZOLE
     Indication: PRODUCT USED FOR UNKNOWN INDICATION
     Dosage: 20 MILLIGRAM
     Route: 048
     Dates: start: 20190720, end: 20190724
  7. IPILIMUMAB [Suspect]
     Active Substance: IPILIMUMAB
     Indication: RENAL CANCER
     Dosage: 69 MILLIGRAM
     Route: 042
     Dates: start: 20190704, end: 20190704
  8. AMLOR [Concomitant]
     Active Substance: AMLODIPINE BESYLATE
     Indication: HYPERTENSION
     Dosage: 10 MILLIGRAM
     Route: 048
     Dates: start: 20190718, end: 20190724
  9. MEDROL [Concomitant]
     Active Substance: METHYLPREDNISOLONE
     Indication: MYOSITIS
     Dosage: 32 MILLIGRAM
     Route: 048
     Dates: start: 20190719, end: 20190724

REACTIONS (8)
  - Dyspnoea [Unknown]
  - Infarction [Fatal]
  - Acute kidney injury [Unknown]
  - Orthopnoea [Unknown]
  - General physical health deterioration [Unknown]
  - Myositis [Unknown]
  - Asthenia [Unknown]
  - Restlessness [Unknown]

NARRATIVE: CASE EVENT DATE: 20190718
